FAERS Safety Report 10185132 (Version 3)
Quarter: 2014Q3

REPORT INFORMATION
  Report Type: Spontaneous
  Country: US (occurrence: US)
  Receive Date: 20140521
  Receipt Date: 20140728
  Transmission Date: 20150326
  Serious: Yes (Other)
  Sender: FDA-Public Use
  Company Number: CHPA2014US006768

PATIENT
  Age: 74 Year
  Sex: Male

DRUGS (4)
  1. PREVACID [Suspect]
     Active Substance: LANSOPRAZOLE
     Indication: GASTRIC PH INCREASED
  2. PREVACID [Suspect]
     Active Substance: LANSOPRAZOLE
     Indication: INCORRECT DRUG ADMINISTRATION DURATION
  3. PREVACID [Suspect]
     Active Substance: LANSOPRAZOLE
     Indication: OFF LABEL USE
  4. PREVACID [Suspect]
     Active Substance: LANSOPRAZOLE
     Indication: GASTRIC ULCER HAEMORRHAGE
     Dosage: 1 DF, QD

REACTIONS (2)
  - Sneezing [Recovering/Resolving]
  - Atrial fibrillation [Recovered/Resolved]
